FAERS Safety Report 15692710 (Version 18)
Quarter: 2024Q3

REPORT INFORMATION
  Report Type: Report from Study
  Country: CA (occurrence: CA)
  Receive Date: 20181206
  Receipt Date: 20240802
  Transmission Date: 20241016
  Serious: Yes (Other)
  Sender: ROCHE
  Company Number: CA-ROCHE-2220791

PATIENT
  Age: 45 Year
  Sex: Female

DRUGS (7)
  1. OCREVUS [Suspect]
     Active Substance: OCRELIZUMAB
     Indication: Relapsing-remitting multiple sclerosis
     Dosage: 300 MG AT DAY 0 AND 14, THEN 600 MG EVERY 6 MONTH
     Route: 042
     Dates: start: 20181113
  2. OCREVUS [Suspect]
     Active Substance: OCRELIZUMAB
     Route: 042
     Dates: start: 20190530
  3. CORTISONE [Suspect]
     Active Substance: CORTISONE
     Indication: Premedication
     Route: 065
  4. MORPHINE [Suspect]
     Active Substance: MORPHINE
     Indication: Pain
     Route: 065
  5. TYLENOL [Suspect]
     Active Substance: ACETAMINOPHEN
     Indication: Product used for unknown indication
     Route: 065
  6. ESTROGEL [Concomitant]
     Active Substance: ESTRADIOL
  7. PROGESTERONE [Concomitant]
     Active Substance: PROGESTERONE

REACTIONS (30)
  - Hypoaesthesia [Unknown]
  - Aphonia [Unknown]
  - Presyncope [Unknown]
  - Oropharyngeal pain [Not Recovered/Not Resolved]
  - Myalgia [Recovered/Resolved]
  - Rhinorrhoea [Not Recovered/Not Resolved]
  - Dysgeusia [Recovered/Resolved]
  - Discomfort [Unknown]
  - Nausea [Recovered/Resolved]
  - Headache [Unknown]
  - Malaise [Recovered/Resolved]
  - Paraesthesia [Unknown]
  - Insomnia [Unknown]
  - Nasal congestion [Recovering/Resolving]
  - Asthenia [Not Recovered/Not Resolved]
  - Sputum discoloured [Unknown]
  - Palpitations [Recovering/Resolving]
  - Dizziness [Recovering/Resolving]
  - Feeling cold [Recovered/Resolved]
  - Fatigue [Not Recovered/Not Resolved]
  - Nasopharyngitis [Unknown]
  - Gastrointestinal disorder [Unknown]
  - Migraine [Not Recovered/Not Resolved]
  - Infusion related reaction [Recovered/Resolved]
  - Tooth injury [Not Recovered/Not Resolved]
  - Tooth infection [Unknown]
  - Urinary tract infection [Not Recovered/Not Resolved]
  - COVID-19 [Recovered/Resolved]
  - Immunosuppression [Unknown]
  - Drug ineffective [Unknown]

NARRATIVE: CASE EVENT DATE: 20181113
